FAERS Safety Report 8421818-4 (Version None)
Quarter: 2012Q2

REPORT INFORMATION
  Report Type: 
  Country: None (occurrence: None)
  Receive Date: 20120608
  Receipt Date: 20120605
  Transmission Date: 20120825
  Serious: Yes (Other)
  Sender: FDA-Public Use
  Company Number: TR-BAYER-2012-055661

PATIENT
  Age: 68 Year
  Sex: Male

DRUGS (5)
  1. HEPARIN [Concomitant]
     Indication: ANGINA UNSTABLE
     Dosage: 5000 U, UNK
     Route: 042
  2. ULTRAVIST 150 [Suspect]
     Indication: ANGINA UNSTABLE
  3. ACETYLSALICYLIC ACID SRT [Concomitant]
     Indication: ANGINA UNSTABLE
     Dosage: 300 MG, UNK
  4. CLOPIDOGREL [Concomitant]
     Indication: ANGINA UNSTABLE
     Dosage: 600 MG, UNK
  5. ULTRAVIST 150 [Suspect]
     Indication: ARTERIOGRAM CORONARY
     Dosage: 250 ML, UNK
     Route: 022

REACTIONS (4)
  - CONFUSIONAL STATE [None]
  - NERVOUS SYSTEM DISORDER [None]
  - MONOPLEGIA [None]
  - NAUSEA [None]
